FAERS Safety Report 7575530-4 (Version None)
Quarter: 2011Q2

REPORT INFORMATION
  Report Type: 
  Country: None (occurrence: None)
  Receive Date: 20110627
  Receipt Date: 20110616
  Transmission Date: 20111010
  Serious: No
  Sender: FDA-Public Use
  Company Number: DE-ALLERGAN-1108169US

PATIENT
  Age: 79 Year
  Sex: Male

DRUGS (1)
  1. OZURDEX [Suspect]
     Indication: CYSTOID MACULAR OEDEMA
     Dosage: 0.7 MG, SINGLE
     Route: 031
     Dates: start: 20110302, end: 20110302

REACTIONS (1)
  - OCULAR HYPERTENSION [None]
